FAERS Safety Report 13807390 (Version 3)
Quarter: 2017Q3

REPORT INFORMATION
  Report Type: Report from Study
  Country: US (occurrence: US)
  Receive Date: 20170728
  Receipt Date: 20170928
  Transmission Date: 20171127
  Serious: Yes (Other)
  Sender: FDA-Public Use
  Company Number: US-EMD SERONO-E2B_80059810

PATIENT
  Age: 76 Year
  Sex: Female
  Weight: 60 kg

DRUGS (7)
  1. PRAVACHOL [Suspect]
     Active Substance: PRAVASTATIN SODIUM
     Indication: HYPERLIPIDAEMIA
     Dosage: 10 MG, DAILY, TABLET
     Route: 048
     Dates: start: 20160324, end: 20170126
  2. ACETAMINOPHEN. [Concomitant]
     Active Substance: ACETAMINOPHEN
     Indication: PRODUCT USED FOR UNKNOWN INDICATION
     Dosage: UNK
  3. LISINOPRIL. [Concomitant]
     Active Substance: LISINOPRIL
     Indication: PRODUCT USED FOR UNKNOWN INDICATION
     Dosage: UNK
  4. OXYCODONE [Concomitant]
     Active Substance: OXYCODONE
     Indication: PRODUCT USED FOR UNKNOWN INDICATION
     Dosage: UNK
  5. CYCLOBENZAPRINE. [Concomitant]
     Active Substance: CYCLOBENZAPRINE
     Indication: PRODUCT USED FOR UNKNOWN INDICATION
     Dosage: UNK
  6. AVELUMAB [Suspect]
     Active Substance: AVELUMAB
     Indication: ENDOMETRIAL CANCER
     Dosage: 10 MG/KG, ONCE EVERY 2 WEEKS
     Route: 042
     Dates: start: 20161205
  7. TAFLUPROST [Concomitant]
     Active Substance: TAFLUPROST
     Indication: PRODUCT USED FOR UNKNOWN INDICATION
     Dosage: UNK

REACTIONS (1)
  - Myositis [Not Recovered/Not Resolved]

NARRATIVE: CASE EVENT DATE: 20170125
